FAERS Safety Report 9516756 (Version 1)
Quarter: 2013Q3

REPORT INFORMATION
  Report Type: Spontaneous
  Country: US (occurrence: US)
  Receive Date: 20130911
  Receipt Date: 20130911
  Transmission Date: 20140515
  Serious: No
  Sender: FDA-Public Use
  Company Number: US-ASTRAZENECA-2013SE51697

PATIENT
  Age: 37 Year
  Sex: Female
  Weight: 65.8 kg

DRUGS (6)
  1. SYMBICORT [Suspect]
     Indication: CHEST DISCOMFORT
     Dosage: 160/4.5 MCG, 1 PUFF AS NEEDED
     Route: 055
     Dates: start: 2012
  2. LORTAB [Concomitant]
     Indication: MUSCULOSKELETAL DISCOMFORT
     Dosage: 10/500MG QID (FOUR TIMES A DAY)
     Route: 048
     Dates: start: 2000
  3. SOMA [Concomitant]
     Indication: MUSCLE RELAXANT THERAPY
     Route: 048
     Dates: start: 2000
  4. AMBIEN [Concomitant]
     Indication: SLEEP DISORDER
     Route: 048
     Dates: start: 201303
  5. XANAX [Concomitant]
     Indication: IRRITABILITY
     Route: 048
     Dates: start: 201301
  6. VITAMIN C [Concomitant]
     Route: 048

REACTIONS (13)
  - Hypophagia [Unknown]
  - Decreased appetite [Unknown]
  - Blood cholesterol increased [Unknown]
  - Blood triglycerides increased [Unknown]
  - Dyspnoea [Unknown]
  - Chest discomfort [Unknown]
  - Back disorder [Unknown]
  - Insomnia [Unknown]
  - Depression [Unknown]
  - Agitation [Unknown]
  - Irritability [Unknown]
  - Off label use [Unknown]
  - Drug dose omission [Unknown]
